FAERS Safety Report 7503335-9 (Version None)
Quarter: 2011Q2

REPORT INFORMATION
  Report Type: 
  Country: None (occurrence: None)
  Receive Date: 20110524
  Receipt Date: 20110524
  Transmission Date: 20111010
  Serious: Yes (Life-Threatening, Other)
  Sender: FDA-Public Use
  Company Number: None

PATIENT
  Age: 31 Year
  Sex: Male
  Weight: 186.882 kg

DRUGS (1)
  1. LISINOPRIL AND HYDROCHLOROTHIAZIDE [Suspect]
     Indication: HYPERTENSION
     Dosage: 10/12.5 MG ONE TABLET/DAY PO
     Route: 048
     Dates: start: 20110408, end: 20110523

REACTIONS (4)
  - HYPOAESTHESIA [None]
  - CHEST DISCOMFORT [None]
  - MUSCULAR WEAKNESS [None]
  - FATIGUE [None]
